FAERS Safety Report 16927526 (Version 1)
Quarter: 2019Q4

REPORT INFORMATION
  Report Type: Spontaneous
  Country: IT (occurrence: IT)
  Receive Date: 20191016
  Receipt Date: 20191016
  Transmission Date: 20200122
  Serious: Yes (Other)
  Sender: FDA-Public Use
  Company Number: IT-BEH-2019108100

PATIENT
  Age: 86 Year
  Sex: Male

DRUGS (1)
  1. PRIVIGEN [Suspect]
     Active Substance: HUMAN IMMUNOGLOBULIN G
     Indication: ACUTE INTERSTITIAL PNEUMONITIS
     Dosage: 20 GRAM, TOT
     Route: 042
     Dates: start: 20190916, end: 20190916

REACTIONS (5)
  - Chills [Recovered/Resolved]
  - Tachypnoea [Recovered/Resolved]
  - No adverse event [Unknown]
  - Product use in unapproved indication [Unknown]
  - Dyspnoea [Recovered/Resolved]

NARRATIVE: CASE EVENT DATE: 20190916
